FAERS Safety Report 10267728 (Version 1)
Quarter: 2014Q2

REPORT INFORMATION
  Report Type: Spontaneous
  Country: US (occurrence: None)
  Receive Date: 20140626
  Receipt Date: 20140626
  Transmission Date: 20141212
  Serious: Yes (Other)
  Sender: FDA-Public Use
  Company Number: None

PATIENT
  Age: 63 Year
  Sex: Female

DRUGS (6)
  1. AFINITOR [Suspect]
     Indication: BREAST CANCER
     Route: 048
     Dates: start: 20140228, end: 20140611
  2. EXEMESTANE [Concomitant]
  3. AMOXICLLIN [Concomitant]
  4. XELODA [Concomitant]
  5. EXESMESTANE [Concomitant]
  6. PANTOPRAZOLE [Concomitant]

REACTIONS (1)
  - Drug ineffective [None]
